FAERS Safety Report 16235280 (Version 1)
Quarter: 2019Q2

REPORT INFORMATION
  Report Type: Spontaneous
  Country: CN (occurrence: CN)
  Receive Date: 20190424
  Receipt Date: 20190424
  Transmission Date: 20190711
  Serious: Yes (Other)
  Sender: FDA-Public Use
  Company Number: CN-PFIZER INC-2019171357

PATIENT
  Age: 68 Year
  Sex: Male
  Weight: 65 kg

DRUGS (3)
  1. ESTAZOLAM. [Concomitant]
     Active Substance: ESTAZOLAM
     Indication: ANXIETY
     Dosage: 2 MG, 1X/DAY
     Route: 048
     Dates: start: 20190214, end: 20190328
  2. MEROPENEM. [Suspect]
     Active Substance: MEROPENEM
     Indication: BRAIN ABSCESS
     Dosage: 1 G, 3X/DAY
     Route: 041
     Dates: start: 20190213, end: 20190319
  3. ZYVOX [Suspect]
     Active Substance: LINEZOLID
     Indication: BRAIN ABSCESS
     Dosage: 600 MG, 2X/DAY
     Route: 041
     Dates: start: 20190213, end: 20190319

REACTIONS (4)
  - Insomnia [Unknown]
  - Agranulocytosis [Recovered/Resolved]
  - Headache [Unknown]
  - Anxiety [Unknown]

NARRATIVE: CASE EVENT DATE: 20190314
